FAERS Safety Report 7963542-8 (Version None)
Quarter: 2011Q4

REPORT INFORMATION
  Report Type: 
  Country: None (occurrence: None)
  Receive Date: 20111205
  Receipt Date: 20111120
  Transmission Date: 20120403
  Serious: Yes (Death, Hospitalization)
  Sender: FDA-Public Use
  Company Number: TPA2011A07872

PATIENT
  Age: 82 Year
  Sex: Female

DRUGS (2)
  1. ACTOS [Suspect]
  2. DUETACT [Suspect]

REACTIONS (2)
  - INFECTION [None]
  - CARDIAC FAILURE [None]
